FAERS Safety Report 11056047 (Version 3)
Quarter: 2015Q3

REPORT INFORMATION
  Report Type: Spontaneous
  Country: NO (occurrence: NO)
  Receive Date: 20150422
  Receipt Date: 20150715
  Transmission Date: 20151125
  Serious: Yes (Other)
  Sender: FDA-Public Use
  Company Number: NO-GLAXOSMITHKLINE-NO2015052471

PATIENT
  Age: 20 Year
  Sex: Female

DRUGS (4)
  1. LAMICTAL [Interacting]
     Active Substance: LAMOTRIGINE
     Route: 048
  2. LAMICTAL [Interacting]
     Active Substance: LAMOTRIGINE
     Dosage: 150 MG, BID
     Route: 048
  3. LAMICTAL [Suspect]
     Active Substance: LAMOTRIGINE
     Indication: PETIT MAL EPILEPSY
     Dosage: 150 MG, BID
     Route: 048
  4. JAYDESS [Interacting]
     Active Substance: LEVONORGESTREL
     Dosage: UNK
     Route: 015
     Dates: start: 20140930, end: 20150330

REACTIONS (4)
  - Pregnancy with contraceptive device [Recovering/Resolving]
  - Menorrhagia [Recovered/Resolved]
  - Drug interaction [Unknown]
  - Drug ineffective [Unknown]

NARRATIVE: CASE EVENT DATE: 201412
